FAERS Safety Report 4317043-9 (Version None)
Quarter: 2004Q1

REPORT INFORMATION
  Report Type: 
  Country: None (occurrence: None)
  Receive Date: 20040312
  Receipt Date: 20040305
  Transmission Date: 20041129
  Serious: Yes (Hospitalization)
  Sender: FDA-Public Use
  Company Number: 2004202484US

PATIENT
  Age: 38 Year
  Sex: Female

DRUGS (6)
  1. COMPARATOR-DOCETAXEL (COMPARATOR-DOCETAXEL) INJECTION [Suspect]
     Indication: BREAST CANCER
     Dosage: 30 MG, SINGLE, IV
     Route: 042
     Dates: start: 20040304, end: 20040304
  2. LEXAPRO [Concomitant]
  3. MACROBID [Concomitant]
  4. TYLENOL (CAPLET) [Concomitant]
  5. DECADRON [Concomitant]
  6. ALOXI [Concomitant]

REACTIONS (1)
  - HEADACHE [None]
